FAERS Safety Report 5179634-5 (Version None)
Quarter: 2006Q4

REPORT INFORMATION
  Report Type: 
  Country: None (occurrence: None)
  Receive Date: 20061211
  Receipt Date: 20061130
  Transmission Date: 20070319
  Serious: Yes (Hospitalization, Other)
  Sender: FDA-Public Use
  Company Number: 2006-03091

PATIENT
  Age: 67 Year
  Sex: Male

DRUGS (1)
  1. VELCADE [Suspect]
     Indication: MULTIPLE MYELOMA

REACTIONS (6)
  - ENDOSCOPY SMALL INTESTINE ABNORMAL [None]
  - HEPATIC FAILURE [None]
  - INTESTINAL MASS [None]
  - JAUNDICE [None]
  - METASTASES TO LYMPH NODES [None]
  - PLATELET COUNT DECREASED [None]
